FAERS Safety Report 7230802-8 (Version None)
Quarter: 2011Q1

REPORT INFORMATION
  Report Type: 
  Country: None (occurrence: None)
  Receive Date: 20110118
  Receipt Date: 20110114
  Transmission Date: 20110831
  Serious: Yes (Death, Hospitalization, Other)
  Sender: FDA-Public Use
  Company Number: PHHO2011FR01154

PATIENT
  Sex: Female
  Weight: 54 kg

DRUGS (7)
  1. STI571/CGP57148B [Suspect]
     Indication: ACUTE LYMPHOCYTIC LEUKAEMIA
     Dosage: UNK
     Route: 048
     Dates: start: 20090730
  2. CYCLOSPORINE [Concomitant]
  3. ZOVIRAX [Concomitant]
  4. PENTACARINAT [Concomitant]
  5. MESNA [Concomitant]
  6. METHOTREXATE [Concomitant]
  7. HEPARIN [Concomitant]

REACTIONS (15)
  - SKIN EXFOLIATION [None]
  - RESPIRATORY FAILURE [None]
  - URINARY TRACT INFECTION [None]
  - HYPOVOLAEMIA [None]
  - GENERAL PHYSICAL HEALTH DETERIORATION [None]
  - RENAL IMPAIRMENT [None]
  - NEUROLOGICAL SYMPTOM [None]
  - PAIN [None]
  - PYREXIA [None]
  - GRAFT VERSUS HOST DISEASE [None]
  - TACHYPNOEA [None]
  - ERYTHEMA [None]
  - STREPTOCOCCAL INFECTION [None]
  - PULMONARY CONGESTION [None]
  - APLASIA [None]
